FAERS Safety Report 5265178-9 (Version None)
Quarter: 2007Q1

REPORT INFORMATION
  Report Type: 
  Country: None (occurrence: None)
  Receive Date: 20061213
  Receipt Date: 20041210
  Transmission Date: 20070707
  Serious: No
  Sender: FDA-Public Use
  Company Number: 2004UW25329

PATIENT
  Age: 61 Year
  Sex: Female
  Weight: 92.986 kg

DRUGS (1)
  1. TAMOXIFEN CITRATE [Suspect]
     Indication: BREAST CANCER
     Dosage: 20 MG PO
     Route: 048

REACTIONS (2)
  - CONTRALATERAL BREAST CANCER [None]
  - HYPERTENSION [None]
